FAERS Safety Report 23197709 (Version 4)
Quarter: 2024Q3

REPORT INFORMATION
  Report Type: Spontaneous
  Country: BE (occurrence: BE)
  Receive Date: 20231117
  Receipt Date: 20240916
  Transmission Date: 20241016
  Serious: Yes (Death, Hospitalization, Other)
  Sender: TEVA
  Company Number: None

PATIENT
  Age: 85 Year
  Sex: Male

DRUGS (23)
  1. SIMVASTATIN [Suspect]
     Active Substance: SIMVASTATIN
     Indication: Hypercholesterolaemia
     Dosage: 20 MG, QD
     Route: 048
  2. DAPAGLIFLOZIN [Suspect]
     Active Substance: DAPAGLIFLOZIN
     Indication: Cardiac failure
     Dosage: 10 MG, QD
     Route: 048
     Dates: start: 20230315, end: 20231004
  3. TAMSULOSIN [Suspect]
     Active Substance: TAMSULOSIN
     Indication: Benign prostatic hyperplasia
     Dosage: 0.4 MG, QD, TAMSULOSINE HCI
     Route: 048
  4. TAMSULOSIN [Suspect]
     Active Substance: TAMSULOSIN
     Indication: Benign prostatic hyperplasia
     Dosage: 0.4 MG, QD, TAMSULOSINE HCI
     Route: 048
     Dates: start: 20231006
  5. SODIUM BICARBONATE [Concomitant]
     Active Substance: SODIUM BICARBONATE
     Indication: Prophylaxis
     Dosage: 1 G
     Route: 048
     Dates: start: 20230920
  6. SODIUM BICARBONATE [Concomitant]
     Active Substance: SODIUM BICARBONATE
     Indication: Prophylaxis
     Dosage: 1 G, TDS
     Route: 048
     Dates: start: 20230920
  7. BUMETANIDE [Suspect]
     Active Substance: BUMETANIDE
     Indication: Cardiac failure
     Dosage: 1 MG, QD
     Route: 048
     Dates: start: 20230927, end: 20231004
  8. BUMETANIDE [Suspect]
     Active Substance: BUMETANIDE
     Indication: Cardiac failure
     Dosage: 2 MG, QD
     Route: 042
     Dates: start: 20240701
  9. AMIODARONE HYDROCHLORIDE [Suspect]
     Active Substance: AMIODARONE HYDROCHLORIDE
     Indication: Arrhythmia prophylaxis
     Dosage: 200 MG, QD
     Route: 048
     Dates: start: 20230309
  10. SPIRONOLACTONE [Suspect]
     Active Substance: SPIRONOLACTONE
     Indication: Cardiac failure acute
     Dosage: 25 MG, QD
     Route: 048
     Dates: start: 20240630
  11. FENOTEROL [Concomitant]
     Active Substance: FENOTEROL
     Indication: Pneumonia
     Dosage: 2 DF, OTHER (2 DOSAGE FORM QID)
     Route: 065
     Dates: start: 20230924
  12. FENOTEROL [Concomitant]
     Active Substance: FENOTEROL
     Indication: Pneumonia
     Dosage: 8 DF, QD (2 DF, OTHER (2 DOSAGE FORM QID))
     Route: 065
  13. ZOLPIDEM [Concomitant]
     Active Substance: ZOLPIDEM TARTRATE
     Indication: Product used for unknown indication
     Route: 065
  14. TAMSULOSIN [Concomitant]
     Active Substance: TAMSULOSIN
     Indication: Product used for unknown indication
     Dosage: UNK
     Route: 065
     Dates: end: 20240701
  15. ENTRESTO [Suspect]
     Active Substance: SACUBITRIL\VALSARTAN
     Indication: Cardiac failure
     Dosage: 24/26 MG 0.5 TABLET TWICE DAILY
     Route: 048
     Dates: start: 20230522
  16. PANTOPRAZOLE SODIUM [Suspect]
     Active Substance: PANTOPRAZOLE SODIUM
     Indication: Prophylaxis
     Dosage: 40 MG, QD
     Route: 048
  17. BISOPROLOL [Suspect]
     Active Substance: BISOPROLOL\BISOPROLOL FUMARATE
     Indication: Hypertension
     Dosage: 2.5 MG, QD
     Route: 048
     Dates: start: 20230426
  18. DARBEPOETIN ALFA [Concomitant]
     Active Substance: DARBEPOETIN ALFA
     Indication: Product used for unknown indication
     Dosage: 40 UG, Q2W
     Route: 058
  19. DARBEPOETIN ALFA [Concomitant]
     Active Substance: DARBEPOETIN ALFA
     Indication: Product used for unknown indication
     Dosage: UNK
     Route: 065
  20. EDOXABAN TOSYLATE [Suspect]
     Active Substance: EDOXABAN TOSYLATE
     Indication: Thrombosis prophylaxis
     Dosage: 30 MG, QD
     Route: 048
     Dates: start: 20230315, end: 20231004
  21. EDOXABAN TOSYLATE [Suspect]
     Active Substance: EDOXABAN TOSYLATE
     Indication: Thrombosis prophylaxis
     Dosage: 30 MG, QD
     Route: 048
     Dates: start: 20230924, end: 20240702
  22. SACUBITRIL\VALSARTAN [Suspect]
     Active Substance: SACUBITRIL\VALSARTAN
     Indication: Product used for unknown indication
     Dosage: 0.5 MG, BID
     Route: 065
  23. 1 alpha leo [Concomitant]
     Indication: Product used for unknown indication
     Route: 065

REACTIONS (17)
  - Pneumonia [Fatal]
  - Acute kidney injury [Recovered/Resolved]
  - Atrial fibrillation [Recovered/Resolved]
  - Loss of consciousness [Unknown]
  - Hypotension [Unknown]
  - Cardiac failure [Recovered/Resolved]
  - Dizziness [Unknown]
  - Pneumonia [Recovered/Resolved]
  - Presyncope [Unknown]
  - Dehydration [Recovered/Resolved]
  - Atrioventricular block [Recovered/Resolved]
  - Cardiac failure [Recovered/Resolved]
  - Pneumonia [Recovered/Resolved]
  - Cardiac failure [Recovered/Resolved]
  - Wrong technique in product usage process [Unknown]
  - Cardiac failure acute [Fatal]
  - Acute kidney injury [Recovered/Resolved]

NARRATIVE: CASE EVENT DATE: 20230227
